FAERS Safety Report 6184986-3 (Version None)
Quarter: 2009Q2

REPORT INFORMATION
  Report Type: 
  Country: None (occurrence: None)
  Receive Date: 20090511
  Receipt Date: 20090303
  Transmission Date: 20091009
  Serious: No
  Sender: FDA-Public Use
  Company Number: A0771557A

PATIENT

DRUGS (1)
  1. COREG CR [Suspect]
     Indication: HYPERTENSION
     Route: 048

REACTIONS (1)
  - RASH [None]
